FAERS Safety Report 6361623-6 (Version None)
Quarter: 2009Q3

REPORT INFORMATION
  Report Type: 
  Country: None (occurrence: None)
  Receive Date: 20090918
  Receipt Date: 20090914
  Transmission Date: 20100115
  Serious: Yes (Life-Threatening, Hospitalization)
  Sender: FDA-Public Use
  Company Number: PHEH2009US03133

PATIENT
  Sex: Female

DRUGS (1)
  1. RECLAST [Suspect]
     Dosage: UNK, UNK
     Dates: start: 20090319, end: 20090319

REACTIONS (8)
  - CARDIO-RESPIRATORY ARREST [None]
  - DEHYDRATION [None]
  - DIZZINESS [None]
  - FEELING DRUNK [None]
  - HYPERTENSION [None]
  - INFLUENZA [None]
  - LIMB INJURY [None]
  - LOSS OF CONSCIOUSNESS [None]
